FAERS Safety Report 16944679 (Version 1)
Quarter: 2019Q4

REPORT INFORMATION
  Report Type: Spontaneous
  Country: BE (occurrence: BE)
  Receive Date: 20191022
  Receipt Date: 20191022
  Transmission Date: 20200122
  Serious: Yes (Other)
  Sender: FDA-Public Use
  Company Number: BE-TEVA-2011-01154

PATIENT
  Age: 60 Year
  Sex: Female

DRUGS (1)
  1. OMEPRAZOLE (WATSON LABORATORIES) [Suspect]
     Active Substance: OMEPRAZOLE
     Indication: GASTRIC DISORDER
     Route: 065
     Dates: start: 200810

REACTIONS (1)
  - Hypersensitivity vasculitis [Recovered/Resolved]
